FAERS Safety Report 9169823 (Version 1)
Quarter: 2013Q1

REPORT INFORMATION
  Report Type: Spontaneous
  Country: US (occurrence: US)
  Receive Date: 20130319
  Receipt Date: 20130319
  Transmission Date: 20140127
  Serious: Yes (Other)
  Sender: FDA-Public Use
  Company Number: US-AMGEN-USASP2013016739

PATIENT
  Age: 64 Year
  Sex: Female

DRUGS (3)
  1. ENBREL [Suspect]
     Indication: RHEUMATOID ARTHRITIS
     Dosage: 50 MG
     Dates: start: 20121203
  2. ARAVA [Concomitant]
     Dosage: UNK
     Dates: start: 201211, end: 20130215
  3. SULFASALAZIN [Concomitant]
     Dosage: UNK
     Dates: start: 201209, end: 20130215

REACTIONS (1)
  - White blood cell count decreased [Not Recovered/Not Resolved]
